FAERS Safety Report 8000088-5 (Version None)
Quarter: 2011Q4

REPORT INFORMATION
  Report Type: 
  Country: None (occurrence: None)
  Receive Date: 20111222
  Receipt Date: 20111209
  Transmission Date: 20120403
  Serious: Yes (Hospitalization)
  Sender: FDA-Public Use
  Company Number: DE-ELI_LILLY_AND_COMPANY-DE201111008910

PATIENT
  Age: 73 Year
  Sex: Male

DRUGS (3)
  1. CORTISONE ACETATE [Concomitant]
     Dosage: 20 MG, QD
  2. VITAMIN D [Concomitant]
  3. FORTEO [Suspect]
     Indication: OSTEOPOROSIS
     Dosage: UNK, QD
     Route: 058
     Dates: start: 20111102, end: 20111202

REACTIONS (7)
  - HYPOKINESIA [None]
  - ASTHMA [None]
  - DYSPNOEA [None]
  - NEURALGIA [None]
  - SCIATICA [None]
  - PAIN IN EXTREMITY [None]
  - HOSPITALISATION [None]
